FAERS Safety Report 20507278 (Version 1)
Quarter: 2022Q1

REPORT INFORMATION
  Report Type: Spontaneous
  Country: US (occurrence: US)
  Receive Date: 20220223
  Receipt Date: 20220223
  Transmission Date: 20220423
  Serious: No
  Sender: FDA-Public Use
  Company Number: US-BRACCO-2021US02413

PATIENT
  Sex: Female

DRUGS (1)
  1. ISOVUE 300 [Suspect]
     Active Substance: IOPAMIDOL
     Indication: Spinal myelogram
     Dosage: UNKNOWN
     Route: 037

REACTIONS (2)
  - Incorrect route of product administration [Recovered/Resolved]
  - No adverse event [Recovered/Resolved]
